FAERS Safety Report 18939645 (Version 1)
Quarter: 2021Q1

REPORT INFORMATION
  Report Type: Spontaneous
  Country: US (occurrence: US)
  Receive Date: 20210224
  Receipt Date: 20210224
  Transmission Date: 20210420
  Serious: No
  Sender: FDA-Public Use
  Company Number: None

PATIENT
  Age: 61 Year
  Sex: Male

DRUGS (1)
  1. INFLIXIMAB?ABDA (INFLIXIMAB?ABDA 100MG/VIL INJ,LYPHL) [Suspect]
     Active Substance: INFLIXIMAB-ABDA
     Dosage: ?          OTHER FREQUENCY:UNKNOWN;OTHER ROUTE:IV?
     Route: 042
     Dates: start: 20180930, end: 20201231

REACTIONS (2)
  - Myalgia [None]
  - Arthralgia [None]

NARRATIVE: CASE EVENT DATE: 20201231
